FAERS Safety Report 20959917 (Version 2)
Quarter: 2022Q2

REPORT INFORMATION
  Report Type: Spontaneous
  Country: CA (occurrence: None)
  Receive Date: 20220614
  Receipt Date: 20220615
  Transmission Date: 20220721
  Serious: Yes (Other)
  Sender: FDA-Public Use
  Company Number: CA-PFIZER INC-202200824353

PATIENT
  Age: 65 Year
  Sex: Female

DRUGS (1)
  1. METHOTREXATE [Suspect]
     Active Substance: METHOTREXATE
     Indication: Arthritis
     Route: 048
     Dates: start: 2017, end: 201909

REACTIONS (10)
  - Interstitial lung disease [Unknown]
  - Drug ineffective for unapproved indication [Unknown]
  - Product use in unapproved indication [Unknown]
  - Drug intolerance [Unknown]
  - Antisynthetase syndrome [Unknown]
  - Oedema peripheral [Unknown]
  - Synovitis [Unknown]
  - Rheumatoid factor positive [Unknown]
  - C-reactive protein increased [Unknown]
  - Tenosynovitis [Unknown]
